FAERS Safety Report 10160511 (Version 1)
Quarter: 2014Q2

REPORT INFORMATION
  Report Type: Spontaneous
  Country: JP (occurrence: JP)
  Receive Date: 20140508
  Receipt Date: 20140508
  Transmission Date: 20141212
  Serious: Yes (Other)
  Sender: FDA-Public Use
  Company Number: JP-WATSON-2014-09361

PATIENT
  Sex: Female

DRUGS (5)
  1. EPOPROSTENOL (UNKNOWN) [Suspect]
     Indication: PULMONARY HYPERTENSION
     Dosage: INITIAL DOSE OF 2 NG/KG/MIN; INCREASED UP TO 120 NG/KG/MIN
     Route: 040
  2. SILDENAFIL (UNKNOWN) [Suspect]
     Indication: PULMONARY HYPERTENSION
     Dosage: 0.3 MG/KG, PER DOSE
     Route: 048
  3. BOSENTAN (UNKNOWN) [Suspect]
     Indication: PULMONARY HYPERTENSION
     Dosage: 5 MG/KG PER DOSE
     Route: 048
  4. BERAPROST [Suspect]
     Indication: PULMONARY HYPERTENSION
     Dosage: 1 ?G/KG PER DOSE
     Route: 048
  5. NITRIC OXIDE [Concomitant]
     Indication: PULMONARY HYPERTENSION
     Dosage: 5 P.P.M.
     Route: 055

REACTIONS (9)
  - Hypotension [Recovered/Resolved]
  - Prescribed overdose [Recovered/Resolved]
  - Drug effect incomplete [Not Recovered/Not Resolved]
  - Drug ineffective [Not Recovered/Not Resolved]
  - Pneumonia [None]
  - Intestinal perforation [None]
  - Intestinal malrotation [None]
  - Dysplasia [None]
  - Lung disorder [None]
